FAERS Safety Report 14869002 (Version 3)
Quarter: 2018Q4

REPORT INFORMATION
  Report Type: Report from Study
  Country: DE (occurrence: DE)
  Receive Date: 20180509
  Receipt Date: 20181015
  Transmission Date: 20190204
  Serious: Yes (Hospitalization)
  Sender: FDA-Public Use
  Company Number: DE-BIOGEN-2018BI00571928

PATIENT
  Age: 50 Year
  Sex: Female
  Weight: 80 kg

DRUGS (10)
  1. ZOPICLONE [Concomitant]
     Active Substance: ZOPICLONE
     Indication: SLEEP DISORDER
     Route: 048
     Dates: start: 201707
  2. SPASMEX [Concomitant]
     Indication: URINARY TRACT DISORDER
     Route: 048
     Dates: start: 201701
  3. CEFAZOLIN [Concomitant]
     Active Substance: CEFAZOLIN
     Indication: CELLULITIS
     Route: 042
     Dates: start: 201704, end: 20170416
  4. COTRIM [Concomitant]
     Active Substance: SULFAMETHOXAZOLE\TRIMETHOPRIM
     Indication: URINARY TRACT INFECTION
     Route: 048
     Dates: start: 201707, end: 201707
  5. TYSABRI [Suspect]
     Active Substance: NATALIZUMAB
     Indication: MULTIPLE SCLEROSIS
     Route: 042
     Dates: start: 20070723
  6. CEFAZOLIN [Concomitant]
     Active Substance: CEFAZOLIN
     Route: 048
     Dates: start: 20170417, end: 20170420
  7. LYRICA [Concomitant]
     Active Substance: PREGABALIN
     Indication: MUSCLE SPASTICITY
     Route: 048
     Dates: start: 20151119
  8. METHIONINE [Concomitant]
     Active Substance: METHIONINE
     Indication: URINARY TRACT DISORDER
     Route: 048
     Dates: start: 201701, end: 201702
  9. AMANTADINE. [Concomitant]
     Active Substance: AMANTADINE HYDROCHLORIDE
     Indication: FATIGUE
     Route: 048
     Dates: start: 201701
  10. CYSTINOL [Concomitant]
     Active Substance: HERBALS
     Indication: URINARY TRACT DISORDER
     Route: 048
     Dates: start: 201701, end: 20170119

REACTIONS (1)
  - Multiple sclerosis [Not Recovered/Not Resolved]

NARRATIVE: CASE EVENT DATE: 20180307
